FAERS Safety Report 14086116 (Version 1)
Quarter: 2017Q4

REPORT INFORMATION
  Report Type: Spontaneous
  Country: FR (occurrence: FR)
  Receive Date: 20171013
  Receipt Date: 20171013
  Transmission Date: 20180321
  Serious: Yes (Other)
  Sender: FDA-Public Use
  Company Number: FR-SA-2017SA197922

PATIENT
  Age: 60 Year
  Sex: Female

DRUGS (2)
  1. TOUJEO [Suspect]
     Active Substance: INSULIN GLARGINE
     Route: 051
  2. SOLOSTAR [Suspect]
     Active Substance: DEVICE

REACTIONS (3)
  - Hypoglycaemia [Unknown]
  - Fall [Unknown]
  - Cervical vertebral fracture [Unknown]
